FAERS Safety Report 5315547-3 (Version None)
Quarter: 2007Q2

REPORT INFORMATION
  Report Type: 
  Country: None (occurrence: None)
  Receive Date: 20070503
  Receipt Date: 20070419
  Transmission Date: 20071010
  Serious: Yes (Hospitalization)
  Sender: FDA-Public Use
  Company Number: US-BAYER-200711264BWH

PATIENT
  Age: 53 Year
  Sex: Male

DRUGS (19)
  1. ASPIRIN [Suspect]
     Dates: start: 20060101, end: 20060101
  2. AVELOX [Suspect]
     Indication: PNEUMONIA ASPIRATION
     Dates: start: 20060104, end: 20060111
  3. MEDISORB [Suspect]
     Indication: DRUG USE FOR UNKNOWN INDICATION
     Route: 030
     Dates: start: 20051206
  4. MEDISORB [Suspect]
     Route: 030
     Dates: start: 20040129
  5. TRILEPTAL [Concomitant]
     Indication: RESTLESS LEGS SYNDROME
     Dates: start: 20040204, end: 20060101
  6. LOPID [Concomitant]
     Dates: start: 20050118
  7. ALLEGRA [Concomitant]
     Dates: start: 20040413
  8. ATIVAN [Concomitant]
     Dates: start: 20060119
  9. ATIVAN [Concomitant]
     Dates: start: 20051108
  10. AMBIEN [Concomitant]
     Dates: start: 20050831
  11. NEOSYNEPHRINE [Concomitant]
     Dates: start: 20060101, end: 20060101
  12. ZANTAC [Concomitant]
     Dates: start: 19930101
  13. K-DUR 10 [Concomitant]
     Dates: start: 20060108, end: 20060111
  14. OXYCONTIN [Concomitant]
     Dates: start: 20051201, end: 20051201
  15. NARCAN [Concomitant]
     Dates: start: 20051230, end: 20051230
  16. CALCIUM BICARBONATE [Concomitant]
     Dates: start: 20060103, end: 20060103
  17. BICARBONATE [Concomitant]
     Dates: start: 20060103, end: 20060103
  18. INSULIN [Concomitant]
     Dates: start: 20060103, end: 20060103
  19. DOPAMINE HCL [Concomitant]
     Dates: start: 20060103, end: 20060104

REACTIONS (5)
  - CONVULSION [None]
  - CYANOSIS [None]
  - RESPIRATORY DISTRESS [None]
  - RESPIRATORY FAILURE [None]
  - TACHYCARDIA [None]
